FAERS Safety Report 19657841 (Version 4)
Quarter: 2022Q4

REPORT INFORMATION
  Report Type: Other
  Country: US (occurrence: None)
  Receive Date: 20210804
  Receipt Date: 20221222
  Transmission Date: 20230113
  Serious: Yes (Other)
  Sender: FDA-Public Use
  Company Number: US-ROCHE-2881528

PATIENT
  Sex: Female

DRUGS (4)
  1. NUTROPIN [Suspect]
     Active Substance: SOMATROPIN
     Indication: Hypopituitarism
     Dosage: NUSPIN 10 MG PEN
     Route: 058
  2. NUTROPIN [Suspect]
     Active Substance: SOMATROPIN
  3. NUTROPIN [Suspect]
     Active Substance: SOMATROPIN
     Dosage: NUSPIN 10 MG PEN
     Route: 058
  4. NUTROPIN [Suspect]
     Active Substance: SOMATROPIN

REACTIONS (4)
  - Cerebrovascular accident [Unknown]
  - Dizziness [Unknown]
  - Palpitations [Unknown]
  - Memory impairment [Unknown]
